FAERS Safety Report 8785900 (Version 1)
Quarter: 2012Q4

REPORT INFORMATION
  Report Type: 
  Country: US (occurrence: US)
  Receive Date: 20120914
  Receipt Date: 20120914
  Transmission Date: 20130627
  Serious: Yes (Hospitalization)
  Sender: FDA-Public Use
  Company Number: US-PFIZER INC-2012226784

PATIENT
  Age: 60 Year
  Sex: Male

DRUGS (1)
  1. NIFEDIPINE [Suspect]
     Dosage: 1800 mg

REACTIONS (6)
  - Intentional overdose [Unknown]
  - Suicide attempt [Unknown]
  - Hypotension [Recovering/Resolving]
  - Renal failure acute [Recovered/Resolved]
  - Small intestinal obstruction [Recovered/Resolved]
  - Bradycardia [Recovering/Resolving]
